FAERS Safety Report 7953056-3 (Version None)
Quarter: 2011Q4

REPORT INFORMATION
  Report Type: 
  Country: None (occurrence: None)
  Receive Date: 20111201
  Receipt Date: 20111124
  Transmission Date: 20120403
  Serious: Yes (Hospitalization)
  Sender: FDA-Public Use
  Company Number: PHHY2010JP38598

PATIENT
  Sex: Male

DRUGS (11)
  1. OMEPRAZOLE [Concomitant]
     Dosage: 10 MG
     Route: 048
     Dates: start: 20100420
  2. CELECOXIB [Concomitant]
     Indication: METASTATIC RENAL CELL CARCINOMA
     Dosage: 200 MG,
     Route: 048
     Dates: start: 20100420
  3. NAPROXEN [Concomitant]
     Indication: METASTATIC RENAL CELL CARCINOMA
     Dosage: 200 MG,
     Route: 048
     Dates: start: 20100531, end: 20100730
  4. AFINITOR [Suspect]
     Dosage: 5 MG, DAILY
     Route: 048
     Dates: start: 20100607, end: 20100730
  5. SORAFENIB TOSILATE [Concomitant]
     Dosage: 600 MG
     Route: 048
  6. AFINITOR [Suspect]
     Indication: METASTATIC RENAL CELL CARCINOMA
     Dosage: 10 MG, DAILY
     Route: 048
     Dates: start: 20100420, end: 20100515
  7. SORAFENIB TOSILATE [Concomitant]
     Indication: METASTATIC RENAL CELL CARCINOMA
     Dosage: 800 MG,
     Route: 048
     Dates: start: 20090216, end: 20091013
  8. DOMPERIDONE [Concomitant]
     Dosage: 10 MG,
     Route: 048
     Dates: start: 20100711, end: 20100730
  9. PREDNISOLONE [Concomitant]
     Indication: METASTATIC RENAL CELL CARCINOMA
     Dosage: 5 MG,
     Route: 048
     Dates: start: 20100705, end: 20100730
  10. ZOLPIDEM [Concomitant]
     Dosage: 5 MG,
     Route: 048
     Dates: start: 20100420
  11. LASIX [Concomitant]
     Indication: METASTATIC RENAL CELL CARCINOMA
     Dosage: 40 MG,
     Route: 048
     Dates: start: 20100420

REACTIONS (6)
  - BLOOD GLUCOSE INCREASED [None]
  - APHAGIA [None]
  - STOMATITIS [None]
  - PHARYNGEAL ULCERATION [None]
  - NEOPLASM MALIGNANT [None]
  - NEOPLASM PROGRESSION [None]
